FAERS Safety Report 20680597 (Version 1)
Quarter: 2022Q2

REPORT INFORMATION
  Report Type: Spontaneous
  Country: CA (occurrence: CA)
  Receive Date: 20220406
  Receipt Date: 20220406
  Transmission Date: 20220721
  Serious: Yes (Other)
  Sender: FDA-Public Use
  Company Number: CA-PFIZER INC-202200498751

PATIENT
  Age: 46 Year
  Sex: Male

DRUGS (2)
  1. METHOTREXATE SODIUM [Suspect]
     Active Substance: METHOTREXATE SODIUM
     Dosage: 1 DF DOSAGE NOT AVAILABLE
     Route: 065
  2. CELEBREX [Concomitant]
     Active Substance: CELECOXIB
     Dosage: 1 DF, DOSAGE NOT AVAILABLE
     Route: 065
     Dates: start: 201103

REACTIONS (10)
  - Rectal haemorrhage [Unknown]
  - Therapeutic response unexpected [Unknown]
  - Drug ineffective for unapproved indication [Unknown]
  - Spondyloarthropathy [Unknown]
  - Aphthous ulcer [Unknown]
  - Large intestine polyp [Unknown]
  - Abdominal pain [Unknown]
  - Frequent bowel movements [Unknown]
  - Malaise [Unknown]
  - Rectal tenesmus [Unknown]
